FAERS Safety Report 8057387-0 (Version None)
Quarter: 2012Q1

REPORT INFORMATION
  Report Type: 
  Country: None (occurrence: None)
  Receive Date: 20120119
  Receipt Date: 20120116
  Transmission Date: 20120608
  Serious: Yes (Hospitalization)
  Sender: FDA-Public Use
  Company Number: US-ABBOTT-12P-163-0893501-00

PATIENT
  Sex: Female
  Weight: 49.032 kg

DRUGS (1)
  1. HUMIRA [Suspect]
     Indication: CROHN'S DISEASE
     Dates: end: 20111201

REACTIONS (4)
  - GAIT DISTURBANCE [None]
  - GASTROINTESTINAL INFLAMMATION [None]
  - PELVIC PAIN [None]
  - MEGACOLON [None]
